FAERS Safety Report 5045502-2 (Version None)
Quarter: 2006Q3

REPORT INFORMATION
  Report Type: 
  Country: None (occurrence: None)
  Receive Date: 20060707
  Receipt Date: 20040728
  Transmission Date: 20061208
  Serious: Yes (Hospitalization, Other)
  Sender: FDA-Public Use
  Company Number: PHNU2004DE02665

PATIENT
  Age: 65 Year
  Sex: Male

DRUGS (2)
  1. AREDIA [Suspect]
     Indication: PLASMACYTOMA
     Dosage: 30 MG, QMO
     Route: 042
     Dates: start: 20000101
  2. ZOMETA [Suspect]
     Dosage: 4 MG, QMO

REACTIONS (18)
  - ACTINOMYCOSIS [None]
  - ANAESTHESIA [None]
  - BONE DEBRIDEMENT [None]
  - DENTAL OPERATION [None]
  - FISTULA [None]
  - FISTULA REPAIR [None]
  - HAEMOGLOBIN DECREASED [None]
  - IMPAIRED HEALING [None]
  - INTUBATION [None]
  - JAW DISORDER [None]
  - OSTEITIS [None]
  - OSTEOMYELITIS [None]
  - OSTEONECROSIS [None]
  - OSTEOSYNTHESIS [None]
  - PLASTIC SURGERY [None]
  - SEQUESTRECTOMY [None]
  - WOUND DEBRIDEMENT [None]
  - X-RAY DENTAL [None]
